FAERS Safety Report 5327173-0 (Version None)
Quarter: 2007Q2

REPORT INFORMATION
  Report Type: 
  Country: None (occurrence: None)
  Receive Date: 20070514
  Receipt Date: 20070430
  Transmission Date: 20071010
  Serious: Yes (Death, Hospitalization)
  Sender: FDA-Public Use
  Company Number: 2007-00499

PATIENT
  Age: 65 Year
  Sex: Female
  Weight: 41.3 kg

DRUGS (40)
  1. VELCADE [Suspect]
     Indication: MULTIPLE MYELOMA
     Dosage: 1.30 MG/M2, IV BOLUS
     Route: 040
     Dates: start: 20060501, end: 20061021
  2. DEXAMETHASONE TAB [Suspect]
     Indication: MULTIPLE MYELOMA
     Dates: start: 20060501
  3. ARANESP [Concomitant]
  4. KYTRIL [Concomitant]
  5. ATIVAN [Concomitant]
  6. FORADIL AEROLIZER (FORMOTEROL FUMARATE) [Concomitant]
  7. PERCOCET [Concomitant]
  8. ZOMETA [Concomitant]
  9. MIRALAX [Concomitant]
  10. CREON [Concomitant]
  11. ULTRAM [Concomitant]
  12. GUAIFENESIN [Concomitant]
  13. ACTONEL [Concomitant]
  14. ALBUTEROL [Concomitant]
  15. ALLEGRA [Concomitant]
  16. CARDIZEM [Concomitant]
  17. COMPAZINE (PROCHLOREPERAZINE EDISYLATE) [Concomitant]
  18. HUMULIN (INSULIN HUMAN, INSULIN ISOPHANE, HUMAN BIOSYNTHETIC) [Concomitant]
  19. LANTUS [Concomitant]
  20. OXYCONTIN [Concomitant]
  21. MARINOL [Concomitant]
  22. PRILOSEC [Concomitant]
  23. PULMICORT [Concomitant]
  24. POTASSIUM CHLORIDE [Concomitant]
  25. SINGULAIR  ^DIECKMANN: (MONTELUKAST SODIUM) [Concomitant]
  26. SPIRIVA [Concomitant]
  27. CLONIDINE [Concomitant]
  28. ALDACTONE [Concomitant]
  29. AMBIEN [Concomitant]
  30. NEURONTIN [Concomitant]
  31. CALCIUM (CALCIUM) [Concomitant]
  32. ASCORBIC ACID [Concomitant]
  33. LACTULOSE [Concomitant]
  34. ZOCOR [Concomitant]
  35. PREDNISONE TAB [Concomitant]
  36. MULTIVITAMINS (ERGOCALCIFEROL, PANTHENOL, NICOTINAMIDE, RIBOFLAVIN, TH [Concomitant]
  37. NYSTATIN [Concomitant]
  38. ATROVENT [Concomitant]
  39. OXYGEN (OXYGEN) [Concomitant]
  40. LYRICA [Concomitant]

REACTIONS (23)
  - ABDOMINAL PAIN [None]
  - ANXIETY [None]
  - ASTHENIA [None]
  - ASTHMA [None]
  - BONE PAIN [None]
  - CACHEXIA [None]
  - CHRONIC OBSTRUCTIVE PULMONARY DISEASE [None]
  - CONDITION AGGRAVATED [None]
  - CONSTIPATION [None]
  - DEPRESSION [None]
  - DIARRHOEA [None]
  - FATIGUE [None]
  - INSOMNIA [None]
  - LACRIMATION INCREASED [None]
  - MYALGIA [None]
  - NEUROPATHY [None]
  - PAIN [None]
  - PAIN IN EXTREMITY [None]
  - PATHOGEN RESISTANCE [None]
  - PNEUMONIA STAPHYLOCOCCAL [None]
  - RHINORRHOEA [None]
  - THIRST [None]
  - TRANSFUSION [None]
